FAERS Safety Report 4530343-2 (Version None)
Quarter: 2004Q4

REPORT INFORMATION
  Report Type: 
  Country: None (occurrence: None)
  Receive Date: 20041215
  Receipt Date: 20041202
  Transmission Date: 20050328
  Serious: Yes (Life-Threatening, Hospitalization, Congenital Anomaly, Other)
  Sender: FDA-Public Use
  Company Number: 2004089818

PATIENT
  Age: 15 Day
  Sex: Male
  Weight: 3.44 kg

DRUGS (5)
  1. ZITHROMAX [Suspect]
     Indication: PHARYNGOLARYNGEAL PAIN
     Dosage: (1 IN 1 D), ORAL
     Route: 048
     Dates: start: 20031130, end: 20041202
  2. HEPARIN -FRACTION, SODIUM SALT (HEPARIN-FRACTION, SODIUM SLAT) [Concomitant]
  3. ACETYLSALICYLIC ACID SRT [Concomitant]
  4. LYSINE (LYSINE) [Concomitant]
  5. HEPARIN [Concomitant]

REACTIONS (10)
  - CONGENITAL ATRIAL SEPTAL DEFECT [None]
  - CONGENITAL MEGAURETER [None]
  - DRUG EXPOSURE DURING PREGNANCY [None]
  - GASTROOESOPHAGEAL REFLUX DISEASE [None]
  - NEONATAL DISORDER [None]
  - PYELONEPHRITIS [None]
  - RESPIRATORY DISORDER NEONATAL [None]
  - SEPSIS NEONATAL [None]
  - URINARY TRACT MALFORMATION [None]
  - VOLVULUS OF BOWEL [None]
